FAERS Safety Report 7218459-3 (Version None)
Quarter: 2011Q1

REPORT INFORMATION
  Report Type: 
  Country: None (occurrence: None)
  Receive Date: 20110110
  Receipt Date: 20110105
  Transmission Date: 20110831
  Serious: Yes (Other)
  Sender: FDA-Public Use
  Company Number: IT-PFIZER INC-2010179839

PATIENT
  Age: 65 Year
  Sex: Male

DRUGS (4)
  1. TRIATEC COMP [Concomitant]
     Dosage: UNK
  2. AMLODIPINE [Concomitant]
     Dosage: UNK
  3. TORVAST [Suspect]
     Indication: ARTERIOSCLEROSIS OBLITERANS
     Dosage: UNK
     Route: 048
     Dates: start: 20101116, end: 20101215
  4. CONCOR [Concomitant]
     Dosage: UNK

REACTIONS (3)
  - CARDIAC DISORDER [None]
  - HYPERHIDROSIS [None]
  - PALPITATIONS [None]
